FAERS Safety Report 14859303 (Version 2)
Quarter: 2018Q3

REPORT INFORMATION
  Report Type: Report from Study
  Country: US (occurrence: US)
  Receive Date: 20180508
  Receipt Date: 20180706
  Transmission Date: 20181010
  Serious: Yes (Death, Other)
  Sender: FDA-Public Use
  Company Number: US-CIPLA (EU) LIMITED-2018US17232

PATIENT

DRUGS (7)
  1. VINORELBINE [Suspect]
     Active Substance: VINORELBINE\VINORELBINE TARTRATE
     Dosage: 15 MG/M2 ON DAY 1 AND DAY 8 EVERY 21 DAYS
     Route: 065
  2. GEMCITABINE [Suspect]
     Active Substance: GEMCITABINE\GEMCITABINE HYDROCHLORIDE
     Dosage: 600 MG/M2 ON DAY 1 AND DAY 8 EVERY 21 DAYS
     Route: 065
  3. GEMCITABINE [Suspect]
     Active Substance: GEMCITABINE\GEMCITABINE HYDROCHLORIDE
     Dosage: 800 MG/M2 ON DAY 1 AND DAY 8 EVERY 21 DAYS
     Route: 065
  4. PEMBROLIZUMAB. [Suspect]
     Active Substance: PEMBROLIZUMAB
     Indication: LUNG ADENOCARCINOMA
     Dosage: 2 MG/KG, 30 MIN EVERY 21 DAYS
     Route: 042
  5. VINORELBINE [Suspect]
     Active Substance: VINORELBINE\VINORELBINE TARTRATE
     Indication: LUNG ADENOCARCINOMA
     Dosage: 25 MG/M2,  ON DAY 1 AND DAY 8 EVERY 21 DAYS
     Route: 065
  6. GEMCITABINE [Suspect]
     Active Substance: GEMCITABINE\GEMCITABINE HYDROCHLORIDE
     Indication: LUNG ADENOCARCINOMA
     Dosage: 1000 MG/M2,  ON DAY 1 AND DAY 8 EVERY 21 DAYS
     Route: 065
  7. VINORELBINE [Suspect]
     Active Substance: VINORELBINE\VINORELBINE TARTRATE
     Dosage: 20 MG/M2 ON DAY 1 AND DAY 8 EVERY 21 DAYS
     Route: 065

REACTIONS (18)
  - Hypermagnesaemia [Unknown]
  - Pulmonary oedema [Unknown]
  - Anaemia [Unknown]
  - Thrombocytopenia [Unknown]
  - Hypercalcaemia [Unknown]
  - Death [Fatal]
  - Nausea [Unknown]
  - Skin infection [Unknown]
  - Hypoxia [Unknown]
  - Oedema peripheral [Unknown]
  - Pneumonia [Unknown]
  - Hypoalbuminaemia [Unknown]
  - Dyspnoea [Unknown]
  - Constipation [Unknown]
  - Hypernatraemia [Unknown]
  - Vomiting [Unknown]
  - Diarrhoea [Unknown]
  - Haematoma [Unknown]
